APPROVED DRUG PRODUCT: DIALYTE W/ DEXTROSE 4.25% IN PLASTIC CONTAINER
Active Ingredient: CALCIUM CHLORIDE; DEXTROSE; MAGNESIUM CHLORIDE; SODIUM ACETATE; SODIUM CHLORIDE
Strength: 29MG/100ML;4.25GM/100ML;15MG/100ML;610MG/100ML;560MG/100ML
Dosage Form/Route: SOLUTION;INTRAPERITONEAL
Application: N018460 | Product #003
Applicant: B BRAUN MEDICAL INC
Approved: Approved Prior to Jan 1, 1982 | RLD: No | RS: No | Type: DISCN